FAERS Safety Report 9452732 (Version 1)
Quarter: 2013Q3

REPORT INFORMATION
  Report Type: Spontaneous
  Country: US (occurrence: None)
  Receive Date: 20130808
  Receipt Date: 20130808
  Transmission Date: 20140515
  Serious: No
  Sender: FDA-Public Use
  Company Number: None

PATIENT
  Age: 79 None
  Sex: Male
  Weight: 94.1 kg

DRUGS (1)
  1. AMANTADINE [Suspect]
     Indication: PARKINSON^S DISEASE
     Route: 048
     Dates: start: 20090210, end: 20130116

REACTIONS (2)
  - Hallucination [None]
  - Squamous cell carcinoma [None]
